FAERS Safety Report 7979272-2 (Version None)
Quarter: 2011Q4

REPORT INFORMATION
  Report Type: 
  Country: None (occurrence: None)
  Receive Date: 20111214
  Receipt Date: 20111214
  Transmission Date: 20120403
  Serious: No
  Sender: FDA-Public Use
  Company Number: None

PATIENT
  Age: 48 Year
  Sex: Male
  Weight: 68.038 kg

DRUGS (1)
  1. CIPROFLOXACIN [Suspect]
     Indication: PROSTATITIS
     Dosage: 500MG
     Route: 048
     Dates: start: 20110808, end: 20110810

REACTIONS (3)
  - ARTHRALGIA [None]
  - TENDON PAIN [None]
  - DEPRESSION [None]
